FAERS Safety Report 18652744 (Version 12)
Quarter: 2021Q4

REPORT INFORMATION
  Report Type: Report from Study
  Country: CO (occurrence: CO)
  Receive Date: 20201223
  Receipt Date: 20211013
  Transmission Date: 20220303
  Serious: Yes (Life-Threatening)
  Sender: FDA-Public Use
  Company Number: NVSC2020CO338459

PATIENT
  Age: 52 Year
  Sex: Female
  Weight: 57.12 kg

DRUGS (4)
  1. RIBOCICLIB [Suspect]
     Active Substance: RIBOCICLIB
     Indication: HER2 negative breast cancer
     Dosage: 400 MG
     Route: 048
     Dates: start: 20201002, end: 20201214
  2. LETROZOLE [Suspect]
     Active Substance: LETROZOLE
     Indication: HER2 negative breast cancer
     Dosage: 2.5 MG, QD
     Route: 048
     Dates: start: 20201002
  3. ACETAMINOPHEN\HYDROCODONE [Concomitant]
     Active Substance: ACETAMINOPHEN\HYDROCODONE
     Indication: General physical condition
     Dosage: UNK
     Route: 065
     Dates: start: 20201118
  4. CALCIUM CARBONATE [Concomitant]
     Active Substance: CALCIUM CARBONATE
     Indication: General physical condition
     Dosage: UNK
     Route: 065
     Dates: start: 20200916

REACTIONS (2)
  - Lymphopenia [Recovered/Resolved]
  - Lymphopenia [Recovered/Resolved]

NARRATIVE: CASE EVENT DATE: 20201218
